FAERS Safety Report 8617907-1 (Version None)
Quarter: 2012Q3

REPORT INFORMATION
  Report Type: 
  Country: None (occurrence: None)
  Receive Date: 20120824
  Receipt Date: 20120316
  Transmission Date: 20120928
  Serious: No
  Sender: FDA-Public Use
  Company Number: US-ASTRAZENECA-2012SE18461

PATIENT
  Age: 62 Year
  Sex: Male
  Weight: 111.1 kg

DRUGS (3)
  1. SYMBICORT [Suspect]
     Indication: ASTHMA
     Dosage: 160/4.5 MCG, TWO TIMES DAY
     Route: 055
     Dates: start: 20100101
  2. ALLEGRA [Concomitant]
     Indication: MULTIPLE ALLERGIES
  3. SINGULAIR [Concomitant]
     Indication: MULTIPLE ALLERGIES

REACTIONS (2)
  - DYSPNOEA [None]
  - DRUG DOSE OMISSION [None]
